FAERS Safety Report 12806204 (Version 1)
Quarter: 2016Q4

REPORT INFORMATION
  Report Type: Spontaneous
  Country: DK (occurrence: DK)
  Receive Date: 20161004
  Receipt Date: 20161004
  Transmission Date: 20170207
  Serious: Yes (Other)
  Sender: FDA-Public Use
  Company Number: DK-MYLANLABS-2016M1042569

PATIENT

DRUGS (4)
  1. METHOTREXATE. [Suspect]
     Active Substance: METHOTREXATE
     Indication: PROPHYLAXIS
     Dosage: 25 MG, QW
     Route: 058
     Dates: start: 201411
  2. INFLIXIMAB [Suspect]
     Active Substance: INFLIXIMAB
     Dosage: 400 MG EVERY 8 WEEKS
     Route: 042
     Dates: start: 201411
  3. STAMARIL [Suspect]
     Active Substance: YELLOW FEVER VIRUS STRAIN 17D-204 LIVE ANTIGEN
     Indication: PROPHYLAXIS
     Dosage: 0.5 ML
     Route: 058
     Dates: start: 20150313
  4. INFLIXIMAB [Suspect]
     Active Substance: INFLIXIMAB
     Indication: PROPHYLAXIS
     Dosage: 400 MG AT WEEK 0, 2, 6
     Route: 042
     Dates: start: 201411

REACTIONS (2)
  - Influenza like illness [Recovered/Resolved]
  - Drug administration error [Recovered/Resolved]
